FAERS Safety Report 7938308-5 (Version None)
Quarter: 2011Q4

REPORT INFORMATION
  Report Type: 
  Country: None (occurrence: None)
  Receive Date: 20111123
  Receipt Date: 20111115
  Transmission Date: 20120403
  Serious: Yes (Other)
  Sender: FDA-Public Use
  Company Number: GXBR2010US01910

PATIENT
  Sex: Female
  Weight: 78.005 kg

DRUGS (4)
  1. ATENOLOL [Concomitant]
     Indication: TACHYCARDIA
     Dosage: 25 MG, QD
     Route: 048
     Dates: start: 20060401
  2. TETRACYCLINE [Concomitant]
     Indication: ACNE
     Dosage: 250 MG, QD
  3. METHOTREXATE SODIUM [Suspect]
     Indication: CROHN'S DISEASE
     Dosage: 25 MG, QW
     Route: 058
     Dates: start: 20061001, end: 20101031
  4. ACETAMINOPHEN [Concomitant]
     Indication: PAIN
     Dosage: UNK MG, UNK

REACTIONS (13)
  - SOMNOLENCE [None]
  - MUSCULOSKELETAL STIFFNESS [None]
  - LISTLESS [None]
  - ASTHENIA [None]
  - DECREASED APPETITE [None]
  - PYREXIA [None]
  - MYALGIA [None]
  - FATIGUE [None]
  - SYSTEMIC INFLAMMATORY RESPONSE SYNDROME [None]
  - MUSCULOSKELETAL PAIN [None]
  - JOINT STIFFNESS [None]
  - DIARRHOEA [None]
  - GAIT DISTURBANCE [None]
